FAERS Safety Report 8311662-0 (Version None)
Quarter: 2012Q1

REPORT INFORMATION
  Report Type: 
  Country: None (occurrence: None)
  Receive Date: 20120315
  Receipt Date: 20110526
  Transmission Date: 20120608
  Serious: No
  Sender: FDA-Public Use
  Company Number: PHHY2011US46878

PATIENT
  Sex: Female

DRUGS (13)
  1. OMEPRAZOLE [Concomitant]
  2. BUPROPION HCL [Concomitant]
  3. PROVIGIL [Concomitant]
  4. CALCIUM W/MAGNESIUM (CALCIUM, MAGNESIUM) [Concomitant]
  5. GABAPENTIN [Concomitant]
  6. DIAZEPAM [Concomitant]
  7. PROMETHAZINE [Concomitant]
  8. GILENYA [Suspect]
     Dosage: 0.5 MG, QD, ORAL
     Route: 048
  9. VITAMIN B2 (RIBOFLAVIN) [Concomitant]
  10. LOVAZA [Concomitant]
  11. AMOXI-CLAVULANICO (AMOXICILLIN, CLAVULANIC ACID) [Concomitant]
  12. OXYCODONE HCL [Concomitant]
  13. VITAMIN D [Concomitant]

REACTIONS (2)
  - CONTUSION [None]
  - MIGRAINE [None]
